FAERS Safety Report 19903267 (Version 1)
Quarter: 2021Q4

REPORT INFORMATION
  Report Type: Spontaneous
  Country: GB (occurrence: GB)
  Receive Date: 20211001
  Receipt Date: 20211001
  Transmission Date: 20220303
  Serious: Yes (Other)
  Sender: FDA-Public Use
  Company Number: None

PATIENT

DRUGS (3)
  1. AMLODIPINE [Suspect]
     Active Substance: AMLODIPINE BESYLATE
     Indication: Hypertension
     Route: 065
     Dates: start: 20180301
  2. METOCLOPRAMIDE HYDROCHLORIDE [Suspect]
     Active Substance: METOCLOPRAMIDE HYDROCHLORIDE
     Indication: Hypertension
     Route: 065
  3. RAMIPRIL [Concomitant]
     Active Substance: RAMIPRIL
     Indication: Hypertension

REACTIONS (9)
  - Polyuria [Unknown]
  - Oedema [Unknown]
  - Depressed mood [Unknown]
  - Anxiety [Unknown]
  - Headache [Unknown]
  - Fatigue [Unknown]
  - Nausea [Unknown]
  - Heart rate increased [Unknown]
  - Joint swelling [Unknown]
